FAERS Safety Report 7399400-X (Version None)
Quarter: 2011Q2

REPORT INFORMATION
  Report Type: 
  Country: None (occurrence: None)
  Receive Date: 20110407
  Receipt Date: 20110324
  Transmission Date: 20111010
  Serious: Yes (Other)
  Sender: FDA-Public Use
  Company Number: PHFR2011IE02167

PATIENT
  Sex: Male

DRUGS (1)
  1. CLOZARIL [Suspect]
     Indication: SCHIZOPHRENIA
     Route: 048
     Dates: start: 20020225

REACTIONS (9)
  - RASH GENERALISED [None]
  - RASH PUSTULAR [None]
  - NAUSEA [None]
  - VOMITING [None]
  - BODY TEMPERATURE INCREASED [None]
  - VIRAL INFECTION [None]
  - EATING DISORDER [None]
  - WHITE BLOOD CELL COUNT DECREASED [None]
  - NEUTROPHIL COUNT DECREASED [None]
